FAERS Safety Report 6099601-7 (Version None)
Quarter: 2009Q1

REPORT INFORMATION
  Report Type: 
  Country: None (occurrence: None)
  Receive Date: 20090303
  Receipt Date: 20090219
  Transmission Date: 20090719
  Serious: No
  Sender: FDA-Public Use
  Company Number: PT-SANOFI-SYNTHELABO-A01200901242

PATIENT
  Sex: Male

DRUGS (3)
  1. DEXAMETHASONE [Concomitant]
     Route: 042
  2. ELOXATIN [Suspect]
     Indication: COLON NEOPLASM
     Route: 041
     Dates: start: 20090127, end: 20090127
  3. ONDASETRON [Concomitant]
     Dosage: UNK
     Route: 042

REACTIONS (4)
  - ABDOMINAL DISCOMFORT [None]
  - BRADYCARDIA [None]
  - ERYTHEMA [None]
  - HYPOTENSION [None]
